FAERS Safety Report 20129110 (Version 1)
Quarter: 2021Q4

REPORT INFORMATION
  Report Type: Spontaneous
  Country: CN (occurrence: None)
  Receive Date: 20211130
  Receipt Date: 20211130
  Transmission Date: 20220303
  Serious: Yes (Other)
  Sender: FDA-Public Use
  Company Number: CN-ROCHE-2609967

PATIENT
  Age: 51 Year
  Sex: Female

DRUGS (20)
  1. MABTHERA [Suspect]
     Active Substance: RITUXIMAB
     Indication: Diffuse large B-cell lymphoma stage IV
     Dosage: DAY0, FOR 1 CYCLES OF TREATMENT
     Route: 042
  2. VINDESINE [Concomitant]
     Active Substance: VINDESINE
  3. IFOSFAMIDE [Concomitant]
     Active Substance: IFOSFAMIDE
  4. IFOSFAMIDE [Concomitant]
     Active Substance: IFOSFAMIDE
  5. DOXORUBICIN HYDROCHLORIDE [Concomitant]
     Active Substance: DOXORUBICIN HYDROCHLORIDE
  6. PREDNISONE [Concomitant]
     Active Substance: PREDNISONE
  7. LENALIDOMIDE [Concomitant]
     Active Substance: LENALIDOMIDE
  8. ETOPOSIDE [Concomitant]
     Active Substance: ETOPOSIDE
  9. ETOPOSIDE [Concomitant]
     Active Substance: ETOPOSIDE
  10. DEXAMETHASONE [Concomitant]
     Active Substance: DEXAMETHASONE
  11. DEXAMETHASONE [Concomitant]
     Active Substance: DEXAMETHASONE
  12. SULFAMETHOXAZOLE [Concomitant]
     Active Substance: SULFAMETHOXAZOLE
  13. CASPOFUNGIN [Concomitant]
     Active Substance: CASPOFUNGIN
  14. METHYLPREDNISOLONE SODIUM SUCCINATE [Concomitant]
     Active Substance: METHYLPREDNISOLONE SODIUM SUCCINATE
  15. METHOTREXATE [Concomitant]
     Active Substance: METHOTREXATE
  16. AMINOPTERIN [Concomitant]
     Active Substance: AMINOPTERIN
  17. CYTARABINE [Concomitant]
     Active Substance: CYTARABINE
  18. CYTARABINE [Concomitant]
     Active Substance: CYTARABINE
  19. FLUDARABINE [Concomitant]
     Active Substance: FLUDARABINE PHOSPHATE
  20. CYCLOPHOSPHAMIDE [Concomitant]
     Active Substance: CYCLOPHOSPHAMIDE

REACTIONS (2)
  - Platelet count decreased [Unknown]
  - Pyrexia [Unknown]
